FAERS Safety Report 7822935-X (Version None)
Quarter: 2011Q4

REPORT INFORMATION
  Report Type: 
  Country: None (occurrence: None)
  Receive Date: 20111018
  Receipt Date: 20110809
  Transmission Date: 20120403
  Serious: No
  Sender: FDA-Public Use
  Company Number: US-ASTRAZENECA-2009UW08828

PATIENT
  Age: 21878 Day
  Sex: Female
  Weight: 99.8 kg

DRUGS (12)
  1. SINGULAIR [Concomitant]
  2. GLIPIZIDE [Concomitant]
  3. BUMETANIDE [Concomitant]
  4. CRESTOR [Suspect]
     Route: 048
  5. ENALAPRIL MALEATE [Concomitant]
  6. METFORMIN HCL [Concomitant]
  7. VYTORIN [Concomitant]
  8. POTASSIUM [Concomitant]
  9. CITALOPRAM [Concomitant]
  10. ZYRTEC [Concomitant]
  11. RANITIDINE [Concomitant]
  12. SYMBICORT [Suspect]
     Indication: ASTHMA
     Dosage: 160/4.5 UG UNKNOWN FREQUENCY
     Route: 055

REACTIONS (2)
  - ASTHMA [None]
  - DYSPHONIA [None]
